FAERS Safety Report 19829233 (Version 2)
Quarter: 2021Q3

REPORT INFORMATION
  Report Type: Spontaneous
  Country: JP (occurrence: JP)
  Receive Date: 20210914
  Receipt Date: 20210921
  Transmission Date: 20211014
  Serious: Yes (Hospitalization)
  Sender: FDA-Public Use
  Company Number: JP-AMGEN-JPNSP2021139549

PATIENT
  Sex: Male

DRUGS (1)
  1. APREMILAST [Suspect]
     Active Substance: APREMILAST
     Indication: PSORIASIS
     Route: 065

REACTIONS (2)
  - Therapeutic product effect incomplete [Unknown]
  - Palmoplantar pustulosis [Recovering/Resolving]
